FAERS Safety Report 10205977 (Version 1)
Quarter: 2014Q2

REPORT INFORMATION
  Report Type: Spontaneous
  Country: US (occurrence: None)
  Receive Date: 20140528
  Receipt Date: 20140528
  Transmission Date: 20141212
  Serious: Yes (Hospitalization)
  Sender: FDA-Public Use
  Company Number: None

PATIENT
  Age: 50 Year
  Sex: Female
  Weight: 95 kg

DRUGS (4)
  1. GAMUNEX [Suspect]
     Indication: MYASTHENIA GRAVIS
     Dosage: 38 GM, DAILY FOR 5 DAYS, INTRAVENOUS
     Route: 042
     Dates: start: 20140505, end: 20140506
  2. BENADRYL 25 MG [Concomitant]
  3. MESTINON 60MG [Concomitant]
  4. TRAMADOL 50 MG [Concomitant]

REACTIONS (1)
  - Meningitis aseptic [None]
